FAERS Safety Report 20408638 (Version 1)
Quarter: 2022Q1

REPORT INFORMATION
  Report Type: Spontaneous
  Country: US (occurrence: US)
  Receive Date: 20220201
  Receipt Date: 20220201
  Transmission Date: 20220423
  Serious: No
  Sender: FDA-Public Use
  Company Number: CID000000000021417

PATIENT
  Sex: Female

DRUGS (1)
  1. AJOVY [Suspect]
     Active Substance: FREMANEZUMAB-VFRM
     Dosage: 225/1.5 MG/ML, INJECTION (AUTOINJECTOR)
     Route: 065

REACTIONS (4)
  - Injection site pain [Unknown]
  - Injury associated with device [Unknown]
  - Accidental exposure to product [Unknown]
  - Drug dose omission by device [Unknown]
